FAERS Safety Report 6209591-1 (Version None)
Quarter: 2009Q2

REPORT INFORMATION
  Report Type: 
  Country: None (occurrence: None)
  Receive Date: 20090601
  Receipt Date: 20090527
  Transmission Date: 20091009
  Serious: Yes (Hospitalization, Other)
  Sender: FDA-Public Use
  Company Number: FR-BRISTOL-MYERS SQUIBB COMPANY-14639777

PATIENT
  Age: 71 Year
  Sex: Female

DRUGS (5)
  1. COAPROVEL TABS 150MG/12.5MG [Suspect]
     Indication: HYPERTENSION
     Dosage: 1 DF = 150MG/12.5MG.
  2. METFORMIN HCL [Suspect]
     Indication: DIABETES MELLITUS
     Dosage: STARTED AS 1000MG AND REDICED TO 850 MG. DOSE HAD BEEN DECREASED 3 MONTHS AGO
     Dates: start: 20060101, end: 20090413
  3. ACTOS [Concomitant]
     Dates: start: 20060101, end: 20090416
  4. KARDEGIC [Concomitant]
  5. CRESTOR [Concomitant]
     Dosage: 1 IN THE EVENING

REACTIONS (8)
  - ANAEMIA MEGALOBLASTIC [None]
  - ANOREXIA [None]
  - DIARRHOEA [None]
  - LEUKOPENIA [None]
  - NEUTROPENIA [None]
  - THROMBOCYTOPENIA [None]
  - VOMITING [None]
  - WEIGHT DECREASED [None]
